FAERS Safety Report 5356704-X (Version None)
Quarter: 2007Q2

REPORT INFORMATION
  Report Type: 
  Country: None (occurrence: None)
  Receive Date: 20070614
  Receipt Date: 20070607
  Transmission Date: 20071010
  Serious: Yes (Other)
  Sender: FDA-Public Use
  Company Number: US-ASTRAZENECA-2007UW13747

PATIENT
  Age: 65 Year
  Sex: Female
  Weight: 81.6 kg

DRUGS (12)
  1. ARIMIDEX [Suspect]
     Indication: BREAST CANCER
     Route: 048
     Dates: start: 20060301, end: 20061101
  2. LEVOTHYROXINE SODIUM [Concomitant]
  3. PRILOSEC [Concomitant]
  4. BENICAR [Concomitant]
  5. METHYLDOPA [Concomitant]
  6. ACEBUTOLOL [Concomitant]
  7. CATAPRES [Concomitant]
     Route: 062
  8. LEXAPRO [Concomitant]
  9. ALLEGRA [Concomitant]
  10. CELEBREX [Concomitant]
  11. MULTIVITAMIN [Concomitant]
  12. POTASSIUM ACETATE [Concomitant]

REACTIONS (2)
  - LUPUS-LIKE SYNDROME [None]
  - NEUROPATHY PERIPHERAL [None]
